FAERS Safety Report 4385433-4 (Version None)
Quarter: 2004Q2

REPORT INFORMATION
  Report Type: 
  Country: None (occurrence: None)
  Receive Date: 20040625
  Receipt Date: 20040625
  Transmission Date: 20050107
  Serious: Yes (Hospitalization)
  Sender: FDA-Public Use
  Company Number: None

PATIENT

DRUGS (2)
  1. ISOSORBIDE DINITRATE [Suspect]
     Dosage: 20 MG PO Q 6 EXCEPT HS
  2. AMLODIPINE [Suspect]
     Dosage: 10 MG PO QD

REACTIONS (2)
  - MEDICATION ERROR [None]
  - SYNCOPE [None]
